FAERS Safety Report 13613906 (Version 1)
Quarter: 2017Q2

REPORT INFORMATION
  Report Type: Spontaneous
  Country: US (occurrence: US)
  Receive Date: 20170606
  Receipt Date: 20170606
  Transmission Date: 20170830
  Serious: No
  Sender: FDA-Public Use
  Company Number: US-TEVA-735921ACC

PATIENT
  Age: 65 Year
  Sex: Male
  Weight: 83 kg

DRUGS (1)
  1. MINOXIDIL TSOL MN [Suspect]
     Active Substance: MINOXIDIL
     Indication: ALOPECIA
     Route: 061

REACTIONS (4)
  - Application site pain [Recovered/Resolved]
  - Hair growth abnormal [Unknown]
  - Headache [Not Recovered/Not Resolved]
  - Product quality issue [None]

NARRATIVE: CASE EVENT DATE: 201612
